FAERS Safety Report 11299253 (Version 1)
Quarter: 2015Q3

REPORT INFORMATION
  Report Type: Spontaneous
  Country: US (occurrence: US)
  Receive Date: 20150722
  Receipt Date: 20150722
  Transmission Date: 20151125
  Serious: No
  Sender: FDA-Public Use
  Company Number: US-ELI_LILLY_AND_COMPANY-US201208009101

PATIENT
  Sex: Female

DRUGS (1)
  1. HUMATROPE [Suspect]
     Active Substance: SOMATROPIN
     Indication: GROWTH HORMONE DEFICIENCY
     Dosage: 1 MG, QD

REACTIONS (17)
  - Optic nerve disorder [Unknown]
  - Cataract [Not Recovered/Not Resolved]
  - Walking aid user [Unknown]
  - Hand fracture [Unknown]
  - Rotator cuff syndrome [Unknown]
  - Lens disorder [Unknown]
  - Road traffic accident [Unknown]
  - Drug dose omission [Recovered/Resolved]
  - Head injury [Unknown]
  - Meniere^s disease [Unknown]
  - Vestibular disorder [Unknown]
  - Type 1 diabetes mellitus [Unknown]
  - Deafness [Unknown]
  - Tinnitus [Unknown]
  - Sleep apnoea syndrome [Unknown]
  - Fall [Unknown]
  - Somnolence [Unknown]
